FAERS Safety Report 16966221 (Version 1)
Quarter: 2019Q4

REPORT INFORMATION
  Report Type: Spontaneous
  Country: DE (occurrence: DE)
  Receive Date: 20191028
  Receipt Date: 20191028
  Transmission Date: 20200122
  Serious: Yes (Other)
  Sender: FDA-Public Use
  Company Number: DE-MYLANLABS-2019M1100866

PATIENT
  Age: 33 Year
  Sex: Female

DRUGS (6)
  1. ORNIPRESSIN [Concomitant]
     Dosage: UNK, (2.5 I.E.)
  2. GEMEPROST [Concomitant]
     Active Substance: GEMEPROST
     Dosage: 1 MG, UNK
     Route: 067
  3. PROSTAGLANDIN F2 ALPHA [Concomitant]
     Active Substance: DINOPROST
     Indication: BLEEDING TIME SHORTENED
     Dosage: 5 MG, UNK
     Route: 041
  4. METHOTREXATE. [Suspect]
     Active Substance: METHOTREXATE
     Indication: ABORTION INDUCED
     Dosage: 20 MG, UNK
  5. PROSTAGLANDIN F2 ALPHA [Concomitant]
     Active Substance: DINOPROST
     Indication: ABORTION INDUCED
     Dosage: 10 UG, UNK,INJECTED INTO THE AMNIOTIC SAC
  6. SULPROSTONE [Concomitant]
     Active Substance: SULPROSTONE
     Dosage: 1.5 MG, UNK
     Route: 041

REACTIONS (2)
  - Off label use [Unknown]
  - Drug ineffective for unapproved indication [Recovered/Resolved]
